FAERS Safety Report 5157282-0 (Version None)
Quarter: 2006Q4

REPORT INFORMATION
  Report Type: 
  Country: None (occurrence: None)
  Receive Date: 20061127
  Receipt Date: 20061115
  Transmission Date: 20070319
  Serious: Yes (Death)
  Sender: FDA-Public Use
  Company Number: US-BRISTOL-MYERS SQUIBB COMPANY-13579271

PATIENT
  Age: 93 Year
  Sex: Female

DRUGS (7)
  1. GLUCOPHAGE [Suspect]
     Indication: DIABETES MELLITUS
     Route: 048
     Dates: end: 20061001
  2. COUMADIN [Suspect]
     Route: 048
     Dates: start: 20020101, end: 20061001
  3. INDERAL LA [Concomitant]
     Route: 048
  4. VERAPAMIL [Concomitant]
     Route: 048
  5. FUROSEMIDE [Concomitant]
     Route: 048
  6. PROPOXYPHENE HYDROCHLORIDE [Concomitant]
     Route: 048
  7. VITAMIN CAP [Concomitant]

REACTIONS (1)
  - SUDDEN DEATH [None]
